FAERS Safety Report 23414488 (Version 2)
Quarter: 2024Q1

REPORT INFORMATION
  Report Type: Spontaneous
  Country: US (occurrence: US)
  Receive Date: 20240118
  Receipt Date: 20240131
  Transmission Date: 20240409
  Serious: No
  Sender: FDA-Public Use
  Company Number: US-AMGEN-USASP2024010397

PATIENT
  Sex: Female

DRUGS (2)
  1. AIMOVIG [Suspect]
     Active Substance: ERENUMAB-AOOE
     Indication: Back pain
     Dosage: UNK
     Route: 065
  2. AIMOVIG [Suspect]
     Active Substance: ERENUMAB-AOOE
     Indication: Off label use

REACTIONS (1)
  - Off label use [Unknown]
